FAERS Safety Report 7952175-5 (Version None)
Quarter: 2011Q4

REPORT INFORMATION
  Report Type: 
  Country: None (occurrence: None)
  Receive Date: 20111201
  Receipt Date: 20111128
  Transmission Date: 20120403
  Serious: Yes (Death)
  Sender: FDA-Public Use
  Company Number: PHEH2011US010329

PATIENT
  Sex: Male

DRUGS (3)
  1. CASODEX [Concomitant]
  2. ZOMETA [Suspect]
     Dosage: 4 MG, UNK
  3. LEXAPRO [Concomitant]

REACTIONS (1)
  - DEATH [None]
